FAERS Safety Report 23086892 (Version 2)
Quarter: 2023Q4

REPORT INFORMATION
  Report Type: Spontaneous
  Country: US (occurrence: US)
  Receive Date: 20231020
  Receipt Date: 20231110
  Transmission Date: 20240110
  Serious: Yes (Life-Threatening, Hospitalization, Other)
  Sender: FDA-Public Use
  Company Number: US-MLMSERVICE-20231005-4588583-1

PATIENT
  Age: 81 Year
  Sex: Female

DRUGS (1)
  1. AMIODARONE HYDROCHLORIDE [Suspect]
     Active Substance: AMIODARONE HYDROCHLORIDE
     Indication: Atrial fibrillation
     Dosage: 200 MILLIGRAM, ONCE A DAY (FOR 1 YEAR)
     Route: 065

REACTIONS (3)
  - Lung opacity [Recovering/Resolving]
  - Hypoxia [Recovering/Resolving]
  - Pulmonary toxicity [Recovering/Resolving]
